FAERS Safety Report 4694917-0 (Version None)
Quarter: 2005Q2

REPORT INFORMATION
  Report Type: 
  Country: None (occurrence: None)
  Receive Date: 20050620
  Receipt Date: 20050607
  Transmission Date: 20051028
  Serious: Yes (Other)
  Sender: FDA-Public Use
  Company Number: GXKR2005US01215

PATIENT
  Age: 60 Year
  Sex: Male

DRUGS (5)
  1. METOPROLOL SUCCINATE [Suspect]
     Dosage: 75 MG, BID
  2. HYDROCHLOROTHIAZIDE [Suspect]
     Dosage: 12.5 MG, BID
  3. 2 OTHER DRUGS() [Suspect]
  4. AMLODIPINE [Suspect]
     Dosage: 20 MG, QD, UNK
  5. VALSARTAN [Suspect]
     Dosage: 160 MG, BID, UNK

REACTIONS (4)
  - DIZZINESS [None]
  - LABORATORY TEST ABNORMAL [None]
  - SINUS ARREST [None]
  - SYNCOPE [None]
